FAERS Safety Report 26214958 (Version 1)
Quarter: 2025Q4

REPORT INFORMATION
  Report Type: Other
  Country: US (occurrence: US)
  Receive Date: 20251230
  Receipt Date: 20251230
  Transmission Date: 20260118
  Serious: Yes (Hospitalization, Other)
  Sender: HLS THERAPEUTICS
  Company Number: US-HLS-202500444

PATIENT
  Age: 3 Decade
  Sex: Male

DRUGS (6)
  1. CLOZAPINE [Suspect]
     Active Substance: CLOZAPINE
     Indication: Product used for unknown indication
     Dosage: GRADUALLY TITRATED TO 500 MG/D
     Route: 065
  2. CLOZAPINE [Suspect]
     Active Substance: CLOZAPINE
     Indication: Product used for unknown indication
     Route: 065
  3. MIDAZOLAM [Concomitant]
     Active Substance: MIDAZOLAM
     Dosage: 6 TO 10 MG/H (144 TO 240 MG/D)
     Route: 065
  4. MIDAZOLAM [Concomitant]
     Active Substance: MIDAZOLAM
     Dosage: INTRAVENOUS BOLUS OF MIDAZOLAM 30 MG
     Route: 065
  5. LORAZEPAM [Concomitant]
     Active Substance: LORAZEPAM
     Dosage: GRADUALLY TITRATED TO 6 MG/D
     Route: 065
  6. LORAZEPAM [Concomitant]
     Active Substance: LORAZEPAM
     Route: 065

REACTIONS (4)
  - Intestinal pseudo-obstruction [Recovered/Resolved]
  - Pneumonia aspiration [Recovered/Resolved]
  - Catatonia [Recovered/Resolved]
  - Seizure [Unknown]
